FAERS Safety Report 5792653-0 (Version None)
Quarter: 2008Q2

REPORT INFORMATION
  Report Type: 
  Country: None (occurrence: None)
  Receive Date: 20080624
  Receipt Date: 20080609
  Transmission Date: 20081010
  Serious: Yes (Other)
  Sender: FDA-Public Use
  Company Number: 2008S1007709

PATIENT
  Age: 2 Year
  Sex: Female

DRUGS (1)
  1. ENALAPRIL + HYDROCHLOROTHIAIZDE (VASERETIC) [Suspect]
     Indication: DRUG USE FOR UNKNOWN INDICATION
     Dosage: ONCE; ORAL
     Route: 048
     Dates: start: 20080502, end: 20080502

REACTIONS (2)
  - ACCIDENTAL EXPOSURE [None]
  - BLOOD PRESSURE DECREASED [None]
